FAERS Safety Report 6929589-5 (Version None)
Quarter: 2010Q3

REPORT INFORMATION
  Report Type: 
  Country: None (occurrence: None)
  Receive Date: 20100813
  Receipt Date: 20100730
  Transmission Date: 20110219
  Serious: Yes (Other)
  Sender: FDA-Public Use
  Company Number: MPS1-1000359

PATIENT
  Age: 5 Year
  Sex: Female
  Weight: 19.5 kg

DRUGS (3)
  1. ALDURAZYME [Suspect]
     Indication: MUCOPOLYSACCHARIDOSIS I
     Dosage: 17.4 MG,; 20.3 MG,
     Dates: start: 20050428
  2. CETIRIZINE HCL [Concomitant]
  3. PREDNISONE [Concomitant]

REACTIONS (2)
  - CHORIORETINAL ATROPHY [None]
  - PAPILLOEDEMA [None]
